FAERS Safety Report 8403408-2 (Version None)
Quarter: 2012Q2

REPORT INFORMATION
  Report Type: 
  Country: None (occurrence: None)
  Receive Date: 20120323
  Receipt Date: 20110920
  Transmission Date: 20120825
  Serious: Yes (Other)
  Sender: FDA-Public Use
  Company Number: 163-21880-11043808

PATIENT
  Age: 69 Year
  Sex: Female
  Weight: 83.9 kg

DRUGS (11)
  1. VITAMIN E [Concomitant]
  2. CRANBERRY (CRANBERRY BERCO) [Concomitant]
  3. REVLIMID [Suspect]
     Indication: MYELODYSPLASTIC SYNDROME
     Dosage: 10 MG, DAYS 1-21 OFF 7 DAYS, PO 5 MG, DAILY ON DAYS 1-21, OFF 7 DAYS, PO
     Route: 048
     Dates: start: 20110207, end: 20110410
  4. REVLIMID [Suspect]
     Indication: MYELODYSPLASTIC SYNDROME
     Dosage: 10 MG, DAYS 1-21 OFF 7 DAYS, PO 5 MG, DAILY ON DAYS 1-21, OFF 7 DAYS, PO
     Route: 048
     Dates: start: 20110502
  5. IMODIUM [Concomitant]
  6. ZOLOFT [Concomitant]
  7. ASCORBIC ACID [Concomitant]
  8. EVISTA [Concomitant]
  9. ONDANSETRON [Concomitant]
  10. ZOFRAN [Concomitant]
  11. NEXIUM [Concomitant]

REACTIONS (2)
  - PLATELET COUNT DECREASED [None]
  - NEUTROPHIL COUNT DECREASED [None]
